FAERS Safety Report 8251354-X (Version None)
Quarter: 2012Q2

REPORT INFORMATION
  Report Type: 
  Country: None (occurrence: None)
  Receive Date: 20120402
  Receipt Date: 20120328
  Transmission Date: 20120825
  Serious: Yes (Life-Threatening)
  Sender: FDA-Public Use
  Company Number: JP-GLAXOSMITHKLINE-B0787593A

PATIENT
  Sex: Female

DRUGS (9)
  1. CARBIDOPA AND LEVODOPA [Concomitant]
     Route: 048
     Dates: start: 20111019
  2. ARICEPT [Concomitant]
     Indication: DEMENTIA ALZHEIMER'S TYPE
     Dosage: 1IUAX PER DAY
     Route: 048
     Dates: start: 20110720, end: 20111207
  3. LAMICTAL [Suspect]
     Dosage: 25MG TWICE PER DAY
     Route: 048
     Dates: start: 20111116, end: 20111207
  4. ABILIFY [Concomitant]
     Indication: MANIA
     Route: 048
     Dates: start: 20110727, end: 20111207
  5. DEPAKENE [Concomitant]
     Indication: MANIA
     Route: 048
     Dates: start: 20110727, end: 20111207
  6. CHINESE MEDICINE [Concomitant]
  7. LITHIUM CARBONATE [Concomitant]
     Indication: MANIA
     Route: 048
     Dates: start: 20110727, end: 20111207
  8. LAMICTAL [Suspect]
     Indication: MANIA
     Dosage: 25MG PER DAY
     Route: 048
     Dates: start: 20111109, end: 20111115
  9. LANSOPRAZOLE [Concomitant]
     Indication: DYSPEPSIA
     Dosage: 1IUAX PER DAY
     Route: 048
     Dates: start: 20110720, end: 20111207

REACTIONS (12)
  - WHITE BLOOD CELL COUNT INCREASED [None]
  - PYREXIA [None]
  - NEUTROPHIL PERCENTAGE INCREASED [None]
  - C-REACTIVE PROTEIN INCREASED [None]
  - RASH [None]
  - BLOOD LACTATE DEHYDROGENASE INCREASED [None]
  - STEVENS-JOHNSON SYNDROME [None]
  - DRUG ERUPTION [None]
  - ORAL MUCOSAL EXFOLIATION [None]
  - OROPHARYNGEAL PAIN [None]
  - LYMPHOCYTE PERCENTAGE DECREASED [None]
  - BLOOD POTASSIUM DECREASED [None]
